FAERS Safety Report 6422395-X (Version None)
Quarter: 2009Q4

REPORT INFORMATION
  Report Type: 
  Country: None (occurrence: None)
  Receive Date: 20091030
  Receipt Date: 20091019
  Transmission Date: 20100525
  Serious: Yes (Hospitalization)
  Sender: FDA-Public Use
  Company Number: PHHY2009DE27413

PATIENT
  Sex: Female

DRUGS (3)
  1. ZOMETA [Suspect]
     Indication: BREAST CANCER
     Dosage: 4 MG, Q3MO
     Route: 042
     Dates: start: 20031218, end: 20081211
  2. ZOMETA [Suspect]
     Indication: ADJUVANT THERAPY
  3. ZOLADEX [Concomitant]
     Dosage: UNK
     Route: 030

REACTIONS (7)
  - BONE LESION EXCISION [None]
  - EXOSTOSIS OF EXTERNAL EAR CANAL [None]
  - HYPERPLASIA [None]
  - OSSICULOPLASTY [None]
  - OSTEONECROSIS [None]
  - SURGERY [None]
  - ULCER [None]
